FAERS Safety Report 12687456 (Version 1)
Quarter: 2016Q3

REPORT INFORMATION
  Report Type: Spontaneous
  Country: None (occurrence: FR)
  Receive Date: 20160825
  Receipt Date: 20160825
  Transmission Date: 20161109
  Serious: Yes (Hospitalization, Other)
  Sender: FDA-Public Use
  Company Number: FR-SEBELA IRELAND LIMITED-2016SEB01447

PATIENT
  Age: 35 Year
  Sex: Female

DRUGS (9)
  1. MIRENA [Suspect]
     Active Substance: LEVONORGESTREL
     Indication: CONTRACEPTION
     Dosage: 20 U/G, UNK
     Route: 067
     Dates: end: 200810
  2. LEVOCITIRIZINE RATIOPHARM [Suspect]
     Active Substance: LEVOCETIRIZINE
     Indication: SEASONAL ALLERGY
     Dosage: 5 MG, 1X/DAY
     Route: 048
     Dates: start: 20130906, end: 20131218
  3. TIGREAT [Concomitant]
     Active Substance: FROVATRIPTAN
  4. PAROXETINE. [Suspect]
     Active Substance: PAROXETINE
     Indication: DEPRESSION
     Dosage: 20 MG, 1X/DAY
     Route: 048
     Dates: start: 2007, end: 2007
  5. PAROXETINE. [Suspect]
     Active Substance: PAROXETINE
     Dosage: 20 MG, 1X/DAY
     Dates: start: 20130906, end: 20131218
  6. PAROXETINE. [Suspect]
     Active Substance: PAROXETINE
     Dosage: UNK
     Dates: start: 2014, end: 20160611
  7. MIRENA [Suspect]
     Active Substance: LEVONORGESTREL
     Dosage: 20 U/G, UNK
     Route: 067
     Dates: start: 20131002, end: 20131230
  8. MIRENA [Suspect]
     Active Substance: LEVONORGESTREL
     Dosage: UNK
     Dates: start: 20150722, end: 20160531
  9. PAROXETINE ARROW [Suspect]
     Active Substance: PAROXETINE
     Indication: DEPRESSION
     Dosage: 20 MG, 1X/DAY
     Route: 048
     Dates: start: 20131218, end: 20140206

REACTIONS (2)
  - Thrombotic thrombocytopenic purpura [Unknown]
  - Microangiopathic haemolytic anaemia [Unknown]

NARRATIVE: CASE EVENT DATE: 20131216
